FAERS Safety Report 7384518-8 (Version None)
Quarter: 2011Q1

REPORT INFORMATION
  Report Type: 
  Country: None (occurrence: None)
  Receive Date: 20110330
  Receipt Date: 20110316
  Transmission Date: 20110831
  Serious: Yes (Other)
  Sender: FDA-Public Use
  Company Number: GB-MYLANLABS-2011S1005653

PATIENT
  Sex: Female
  Weight: 60 kg

DRUGS (15)
  1. GABAPENTIN [Suspect]
     Route: 048
     Dates: end: 20110201
  2. GABAPENTIN [Suspect]
     Route: 048
     Dates: end: 20110201
  3. LORATADINE [Concomitant]
     Indication: HYPERSENSITIVITY
     Route: 048
     Dates: start: 20090603
  4. PHOSPHATE /01858901/ [Concomitant]
     Indication: INTESTINAL FUNCTIONAL DISORDER
     Route: 054
     Dates: start: 20091102
  5. GABAPENTIN [Suspect]
     Route: 048
  6. GABAPENTIN [Suspect]
     Indication: PAIN
     Route: 048
     Dates: start: 20110107
  7. GABAPENTIN [Suspect]
     Indication: FACIAL PAIN
     Route: 048
     Dates: start: 20110107
  8. GABAPENTIN [Suspect]
     Route: 048
  9. GABAPENTIN [Suspect]
     Route: 048
     Dates: end: 20110201
  10. AMITRIPTYLINE [Concomitant]
     Indication: HEADACHE
     Route: 048
     Dates: start: 20090306
  11. GABAPENTIN [Suspect]
     Indication: HEADACHE
     Route: 048
     Dates: start: 20110107
  12. DICLOFENAC [Concomitant]
     Indication: MIGRAINE
     Route: 048
     Dates: start: 20050914
  13. GABAPENTIN [Suspect]
     Route: 048
  14. SUMATRIPTAN SUCCINATE [Concomitant]
     Indication: MIGRAINE
     Route: 045
     Dates: start: 20050914
  15. ACETAMINOPHEN AND CODEINE PHOSPHATE [Concomitant]
     Indication: HEADACHE
     Route: 048
     Dates: start: 20100506

REACTIONS (2)
  - SOMNAMBULISM [None]
  - SLEEP TALKING [None]
